FAERS Safety Report 14148076 (Version 2)
Quarter: 2017Q4

REPORT INFORMATION
  Report Type: Spontaneous
  Country: US (occurrence: US)
  Receive Date: 20171101
  Receipt Date: 20171106
  Transmission Date: 20180321
  Serious: No
  Sender: FDA-Public Use
  Company Number: US-PFIZER INC-2017467206

PATIENT
  Age: 78 Year
  Sex: Female

DRUGS (5)
  1. LYRICA [Suspect]
     Active Substance: PREGABALIN
     Dosage: 50 MG, 2X/DAY
     Route: 048
  2. VITAMIN B12 [Concomitant]
     Active Substance: CYANOCOBALAMIN
     Indication: ANAEMIA
     Dosage: 1 PILL A DAY BY MOUTH
     Route: 048
     Dates: start: 2000
  3. LOSARTAN. [Concomitant]
     Active Substance: LOSARTAN
     Indication: BLOOD PRESSURE ABNORMAL
     Dosage: 100MG PILL ONCE DAILY BY MOUTH
     Route: 048
     Dates: start: 2003
  4. LYRICA [Suspect]
     Active Substance: PREGABALIN
     Indication: NEUROPATHY PERIPHERAL
     Dosage: 50 MG, DAILY
     Route: 048
     Dates: start: 2014
  5. FISH OIL [Concomitant]
     Active Substance: FISH OIL
     Dosage: 1200MG CAPSULE ONCE DAILY BY MOUTH
     Route: 048
     Dates: start: 2002

REACTIONS (3)
  - Arthralgia [Recovering/Resolving]
  - Burning sensation [Recovering/Resolving]
  - Condition aggravated [Recovering/Resolving]

NARRATIVE: CASE EVENT DATE: 201708
